FAERS Safety Report 5680713-4 (Version None)
Quarter: 2008Q1

REPORT INFORMATION
  Report Type: 
  Country: None (occurrence: None)
  Receive Date: 20080325
  Receipt Date: 20080222
  Transmission Date: 20080703
  Serious: No
  Sender: FDA-Public Use
  Company Number: ADE# 08-025

PATIENT
  Age: 60 Year
  Sex: Female

DRUGS (1)
  1. CITALOPRAM HYDROBROMIDE [Suspect]
     Dates: start: 20080101

REACTIONS (2)
  - EMOTIONAL DISORDER [None]
  - GENERAL PHYSICAL CONDITION ABNORMAL [None]
